FAERS Safety Report 23128710 (Version 1)
Quarter: 2023Q4

REPORT INFORMATION
  Report Type: Spontaneous
  Country: CA (occurrence: CA)
  Receive Date: 20231031
  Receipt Date: 20231031
  Transmission Date: 20240110
  Serious: Yes (Hospitalization, Other)
  Sender: FDA-Public Use
  Company Number: CA-GILEAD-2023-0648876

PATIENT
  Age: 60 Year
  Sex: Female
  Weight: 65 kg

DRUGS (19)
  1. TRODELVY [Suspect]
     Active Substance: SACITUZUMAB GOVITECAN-HZIY
     Indication: Triple negative breast cancer
     Dosage: UNK
     Route: 042
  2. TRODELVY [Suspect]
     Active Substance: SACITUZUMAB GOVITECAN-HZIY
     Dosage: 750 MG
     Route: 042
  3. TRODELVY [Suspect]
     Active Substance: SACITUZUMAB GOVITECAN-HZIY
     Dosage: UNK
     Route: 042
  4. TRODELVY [Suspect]
     Active Substance: SACITUZUMAB GOVITECAN-HZIY
     Dosage: 730 MG
     Route: 042
  5. TRODELVY [Suspect]
     Active Substance: SACITUZUMAB GOVITECAN-HZIY
     Dosage: 620 MG
     Route: 042
  6. TRODELVY [Suspect]
     Active Substance: SACITUZUMAB GOVITECAN-HZIY
     Dosage: 750 MG
     Route: 042
  7. MAGNESIUM SULFATE [Suspect]
     Active Substance: MAGNESIUM SULFATE\MAGNESIUM SULFATE HEPTAHYDRATE
     Indication: Blood magnesium decreased
     Route: 042
  8. DIPHENHYDRAMINE HYDROCHLORIDE [Suspect]
     Active Substance: DIPHENHYDRAMINE HYDROCHLORIDE
     Indication: Premedication
     Dosage: 50 MG
     Route: 042
  9. NETUPITANT\PALONOSETRON HYDROCHLORIDE [Concomitant]
     Active Substance: NETUPITANT\PALONOSETRON HYDROCHLORIDE
  10. ACETAMINOPHEN [Concomitant]
     Active Substance: ACETAMINOPHEN
  11. CHLORHEXIDINE GLUCONATE [Concomitant]
     Active Substance: CHLORHEXIDINE GLUCONATE
  12. DEXAMETHASONE [Concomitant]
     Active Substance: DEXAMETHASONE
  13. DEXAMETHASONE ACETATE [Concomitant]
     Active Substance: DEXAMETHASONE ACETATE
  14. DIPHENHYDRAMINE [Concomitant]
     Active Substance: DIPHENHYDRAMINE
  15. FAMOTIDINE [Concomitant]
     Active Substance: FAMOTIDINE
  16. LOPERAMIDE [Concomitant]
     Active Substance: LOPERAMIDE
  17. SODIUM CHLORIDE [Concomitant]
     Active Substance: SODIUM CHLORIDE
  18. OLANZAPINE [Concomitant]
     Active Substance: OLANZAPINE
  19. TYLENOL [Concomitant]
     Active Substance: ACETAMINOPHEN

REACTIONS (59)
  - Disease progression [Unknown]
  - Breast cancer metastatic [Unknown]
  - Anxiety [Unknown]
  - Blood creatinine increased [Unknown]
  - Blood disorder [Unknown]
  - Blood magnesium decreased [Unknown]
  - Blood pressure decreased [Unknown]
  - Blood pressure fluctuation [Unknown]
  - COVID-19 [Unknown]
  - Cerebral haemorrhage [Unknown]
  - Cerebrovascular accident [Unknown]
  - Complication associated with device [Unknown]
  - Constipation [Unknown]
  - Cough [Unknown]
  - Depression [Unknown]
  - Device infusion issue [Unknown]
  - Dizziness [Unknown]
  - Dysphagia [Unknown]
  - Flashback [Unknown]
  - Foot fracture [Unknown]
  - Gait disturbance [Unknown]
  - Gait inability [Unknown]
  - Glossodynia [Unknown]
  - Hair growth abnormal [Unknown]
  - Hypersensitivity [Unknown]
  - Hypophagia [Unknown]
  - Ill-defined disorder [Unknown]
  - Malaise [Unknown]
  - Memory impairment [Unknown]
  - Metastases to bone [Unknown]
  - Muscle twitching [Unknown]
  - Nasopharyngitis [Unknown]
  - Neuropathy peripheral [Unknown]
  - Oropharyngeal pain [Unknown]
  - Poor venous access [Unknown]
  - Pyrexia [Unknown]
  - Sedation [Unknown]
  - Sleep disorder [Unknown]
  - Somnolence [Unknown]
  - Tongue coated [Unknown]
  - Tooth extraction [Unknown]
  - Weight decreased [Unknown]
  - Weight fluctuation [Unknown]
  - Weight increased [Unknown]
  - White blood cell count abnormal [Unknown]
  - Pain [Unknown]
  - Diarrhoea [Unknown]
  - Febrile neutropenia [Unknown]
  - Dehydration [Unknown]
  - Fatigue [Unknown]
  - Asthenia [Unknown]
  - Arthralgia [Unknown]
  - Abdominal pain upper [Unknown]
  - Neutrophil count decreased [Unknown]
  - Nausea [Unknown]
  - Vomiting [Unknown]
  - Hypotension [Unknown]
  - Product preparation issue [Unknown]
  - Inappropriate schedule of product administration [Unknown]
